FAERS Safety Report 25784282 (Version 1)
Quarter: 2025Q3

REPORT INFORMATION
  Report Type: Spontaneous
  Country: RU (occurrence: RU)
  Receive Date: 20250910
  Receipt Date: 20250910
  Transmission Date: 20251021
  Serious: Yes (Other)
  Sender: CHIESI
  Company Number: RU-CHIESI-2025CHF06253

PATIENT
  Sex: Male

DRUGS (1)
  1. ELFABRIO [Suspect]
     Active Substance: PEGUNIGALSIDASE ALFA-IWXJ
     Indication: Product used for unknown indication
     Dates: start: 202502

REACTIONS (2)
  - Renal impairment [Unknown]
  - Glomerular filtration rate decreased [Unknown]
